FAERS Safety Report 18047023 (Version 1)
Quarter: 2020Q3

REPORT INFORMATION
  Report Type: Spontaneous
  Country: US (occurrence: US)
  Receive Date: 20200721
  Receipt Date: 20200721
  Transmission Date: 20201103
  Serious: Yes (Other)
  Sender: FDA-Public Use
  Company Number: US-ALKEM LABORATORIES LIMITED-US-ALKEM-2020-03644

PATIENT
  Age: 79 Year
  Sex: Male

DRUGS (6)
  1. PREDNISONE. [Suspect]
     Active Substance: PREDNISONE
     Indication: IMMUNOSUPPRESSION
     Dosage: QD
     Route: 048
     Dates: start: 201611
  2. MYCOPHENOLATE MOFETIL. [Suspect]
     Active Substance: MYCOPHENOLATE MOFETIL
     Indication: IMMUNOSUPPRESSION
     Dosage: 500 MILLIGRAM, BID
     Route: 048
     Dates: start: 201611
  3. HYDRALAZINE HYDROCHLORIDE. [Suspect]
     Active Substance: HYDRALAZINE HYDROCHLORIDE
     Indication: HYPERTENSION
     Dosage: 25 MILLIGRAM, BID
     Route: 065
     Dates: start: 201610, end: 201611
  4. METHYLPREDNISOLONE. [Suspect]
     Active Substance: METHYLPREDNISOLONE
     Indication: IMMUNOSUPPRESSION
     Dosage: 1000 MILLIGRAM, QD
     Route: 042
     Dates: start: 201611
  5. PREDNISONE. [Suspect]
     Active Substance: PREDNISONE
     Dosage: QD
     Route: 048
     Dates: start: 201701
  6. MYCOPHENOLATE MOFETIL. [Suspect]
     Active Substance: MYCOPHENOLATE MOFETIL
     Dosage: 1000 MILLIGRAM, BID
     Route: 048
     Dates: start: 201611

REACTIONS (6)
  - Herpes zoster [Unknown]
  - Acute kidney injury [Unknown]
  - Proteinuria [Recovered/Resolved]
  - Pneumonia [Unknown]
  - Lupus nephritis [Recovered/Resolved]
  - Nephrotic syndrome [Unknown]
